FAERS Safety Report 4279994-3 (Version None)
Quarter: 2004Q1

REPORT INFORMATION
  Report Type: 
  Country: None (occurrence: None)
  Receive Date: 20040126
  Receipt Date: 20040115
  Transmission Date: 20041129
  Serious: Yes (Hospitalization)
  Sender: FDA-Public Use
  Company Number: 2003-11-0816

PATIENT
  Age: 53 Year
  Sex: Male
  Weight: 65 kg

DRUGS (3)
  1. CELESTAMINE TAB [Suspect]
     Indication: ECZEMA
     Dosage: 3T QDAY ORAL
     Route: 048
     Dates: start: 20030920, end: 20030927
  2. OXATOMIDE [Suspect]
     Indication: ECZEMA
     Dosage: ORAL
     Route: 048
     Dates: start: 20030913, end: 20030920
  3. DERMOSOL [Concomitant]

REACTIONS (3)
  - DRUG INEFFECTIVE [None]
  - ERYTHEMA MULTIFORME [None]
  - HEPATIC FUNCTION ABNORMAL [None]
